FAERS Safety Report 4900091-5 (Version None)
Quarter: 2006Q1

REPORT INFORMATION
  Report Type: 
  Country: None (occurrence: None)
  Receive Date: 20060131
  Receipt Date: 20060118
  Transmission Date: 20060701
  Serious: Yes (Other)
  Sender: FDA-Public Use
  Company Number: 2006010146

PATIENT
  Sex: Male

DRUGS (1)
  1. DETROL LA [Suspect]
     Indication: ILL-DEFINED DISORDER
     Dosage: 4 MG (4 MG, 1 IN 1 D)
     Dates: start: 20010321

REACTIONS (9)
  - DECUBITUS ULCER [None]
  - EYELID OEDEMA [None]
  - HYPOACUSIS [None]
  - LYMPHADENOPATHY [None]
  - MASS [None]
  - OEDEMA PERIPHERAL [None]
  - RASH PAPULAR [None]
  - VISUAL ACUITY REDUCED [None]
  - WRONG DRUG ADMINISTERED [None]
